FAERS Safety Report 14537933 (Version 1)
Quarter: 2018Q1

REPORT INFORMATION
  Report Type: Spontaneous
  Country: IT (occurrence: IT)
  Receive Date: 20180216
  Receipt Date: 20180216
  Transmission Date: 20180509
  Serious: Yes (Hospitalization)
  Sender: FDA-Public Use
  Company Number: IT-CIPLA LTD.-2018IT03553

PATIENT

DRUGS (2)
  1. GEMCITABINE [Suspect]
     Active Substance: GEMCITABINE\GEMCITABINE HYDROCHLORIDE
     Indication: LUNG NEOPLASM MALIGNANT
     Dosage: 1600 MG, 1 CYCLICAL
     Route: 065
     Dates: start: 20171108, end: 20171206
  2. CARBOPLATIN. [Suspect]
     Active Substance: CARBOPLATIN
     Indication: LUNG NEOPLASM MALIGNANT
     Dosage: 350 MG, 1 CYCLICAL
     Route: 065
     Dates: start: 20171108, end: 20171206

REACTIONS (2)
  - Haematuria [Recovered/Resolved]
  - Pancytopenia [Recovered/Resolved]

NARRATIVE: CASE EVENT DATE: 20171119
